FAERS Safety Report 9785800 (Version 1)
Quarter: 2013Q4

REPORT INFORMATION
  Report Type: Spontaneous
  Country: FR (occurrence: None)
  Receive Date: 20131224
  Receipt Date: 20131224
  Transmission Date: 20140711
  Serious: Yes (Hospitalization)
  Sender: FDA-Public Use
  Company Number: 1982537

PATIENT
  Age: 83 Year
  Sex: Female

DRUGS (6)
  1. CARBOPLATIN [Suspect]
     Indication: LUNG ADENOCARCINOMA
     Route: 041
     Dates: start: 20101021, end: 20101021
  2. PACLITAXEL EBEWE [Suspect]
     Indication: LUNG ADENOCARCINOMA
     Route: 042
     Dates: start: 20101021, end: 20101021
  3. AZANTAC [Suspect]
     Indication: PREMEDICATION
     Route: 042
     Dates: start: 20101021, end: 20101021
  4. POLARAMINE [Suspect]
     Indication: PREMEDICATION
     Route: 042
     Dates: start: 20101021, end: 20101021
  5. METHYLPREDNISOLONE MERCK [Suspect]
     Indication: PREMEDICATION
     Route: 042
     Dates: start: 20101021, end: 20101021
  6. ZOPHREN /00955301/ [Suspect]
     Indication: PREMEDICATION
     Route: 042
     Dates: start: 20101021, end: 20101021

REACTIONS (3)
  - Chest pain [None]
  - Dyspnoea [None]
  - Bronchospasm [None]
